FAERS Safety Report 6888369-X (Version None)
Quarter: 2010Q3

REPORT INFORMATION
  Report Type: 
  Country: None (occurrence: None)
  Receive Date: 20100730
  Receipt Date: 20100730
  Transmission Date: 20110219
  Serious: Yes (Life-Threatening)
  Sender: FDA-Public Use
  Company Number: US-ROXANE LABORATORIES, INC.-2010-RO-00945RO

PATIENT
  Sex: Female

DRUGS (4)
  1. LITHIUM CARBONATE [Suspect]
     Indication: BIPOLAR DISORDER
     Dosage: 900 MG
     Route: 048
     Dates: start: 20100201, end: 20100725
  2. LITHIUM CARBONATE [Suspect]
     Route: 048
  3. HALDOL [Suspect]
     Indication: TOURETTE'S DISORDER
  4. TOPAMAX [Concomitant]

REACTIONS (7)
  - ABNORMAL BEHAVIOUR [None]
  - ANGER [None]
  - MYALGIA [None]
  - PAIN IN EXTREMITY [None]
  - PHYSICAL ASSAULT [None]
  - SUICIDAL IDEATION [None]
  - TREATMENT NONCOMPLIANCE [None]
